FAERS Safety Report 6032789-2 (Version None)
Quarter: 2009Q1

REPORT INFORMATION
  Report Type: 
  Country: None (occurrence: None)
  Receive Date: 20090109
  Receipt Date: 20081209
  Transmission Date: 20090719
  Serious: No
  Sender: FDA-Public Use
  Company Number: US-BAYER-200833475NA

PATIENT
  Age: 58 Year
  Sex: Female

DRUGS (1)
  1. ULTRAVIST 300 [Suspect]
     Indication: ABDOMINAL PAIN
     Dosage: TOTAL DAILY DOSE: 100  ML  UNIT DOSE: 150 ML
     Route: 042
     Dates: start: 20080904, end: 20080904

REACTIONS (4)
  - EYE SWELLING [None]
  - OCULAR HYPERAEMIA [None]
  - RASH [None]
  - THROAT IRRITATION [None]
